FAERS Safety Report 9157495 (Version 3)
Quarter: 2015Q2

REPORT INFORMATION
  Report Type: Report from Study
  Country: FR (occurrence: FR)
  Receive Date: 20130312
  Receipt Date: 20150603
  Transmission Date: 20150821
  Serious: Yes (Hospitalization, Other)
  Sender: FDA-Public Use
  Company Number: PHHY2013FR023368

PATIENT
  Age: 6 Year
  Sex: Female
  Weight: 22.4 kg

DRUGS (1)
  1. ILARIS [Suspect]
     Active Substance: CANAKINUMAB
     Indication: MUCKLE-WELLS SYNDROME
     Dosage: 2 MG/KG/8 WEEKS
     Route: 058
     Dates: start: 20100923, end: 20130209

REACTIONS (5)
  - Pyrexia [Recovered/Resolved]
  - C-reactive protein increased [Unknown]
  - Urinary tract infection [Recovered/Resolved]
  - White blood cell count increased [Unknown]
  - Pyelonephritis [Recovered/Resolved]

NARRATIVE: CASE EVENT DATE: 20130210
